FAERS Safety Report 14288400 (Version 2)
Quarter: 2018Q4

REPORT INFORMATION
  Report Type: Spontaneous
  Country: CH (occurrence: CH)
  Receive Date: 20171214
  Receipt Date: 20181217
  Transmission Date: 20190204
  Serious: Yes (Hospitalization, Other)
  Sender: FDA-Public Use
  Company Number: CH-SA-2017SA245352

PATIENT
  Age: 61 Year
  Sex: Female

DRUGS (19)
  1. CLEXANE [Suspect]
     Active Substance: ENOXAPARIN SODIUM
     Dosage: 40 MG,QD
     Route: 058
     Dates: start: 20170503, end: 20170620
  2. MORPHINE SULFATE. [Suspect]
     Active Substance: MORPHINE SULFATE
     Indication: PAIN
     Dosage: 20 MG,TID
     Route: 048
     Dates: start: 20170613
  3. DIBASIC SODIUM PHOSPHATE [Concomitant]
     Indication: CONSTIPATION
     Dosage: 120 MG,UNK
     Route: 054
     Dates: start: 20170518
  4. DAFALGAN [Concomitant]
     Active Substance: ACETAMINOPHEN
     Dosage: IN RESERVE, BUT LAST TAKEN ON 02/08/2017 BEFORE THE EPISODE OF CONVULSIVE CRISIS ON 09/08/2017
  5. MORPHINE HYDROCHLORIDE [Concomitant]
     Active Substance: MORPHINE HYDROCHLORIDE
     Dosage: 7.5 MG, BID
     Dates: start: 20170804
  6. MOVICOL [Concomitant]
     Active Substance: POLYETHYLENE GLYCOL 3350\POTASSIUM CHLORIDE\SODIUM BICARBONATE\SODIUM CHLORIDE
     Dosage: 1 SACHET 2X / D
     Route: 065
     Dates: start: 20170802
  7. MORPHINE HYDROCHLORIDE [Concomitant]
     Active Substance: MORPHINE HYDROCHLORIDE
     Dosage: 7.5 MG, QD
     Dates: start: 20170808, end: 20170912
  8. GABAPENTIN. [Concomitant]
     Active Substance: GABAPENTIN
     Dosage: UNK UNK,UNK
     Route: 065
     Dates: start: 20170814
  9. VALPROATE SODIUM. [Suspect]
     Active Substance: VALPROATE SODIUM
     Dosage: 600 MG,BID
     Route: 048
     Dates: start: 20170725
  10. CEFTRIAXONE. [Suspect]
     Active Substance: CEFTRIAXONE
     Dosage: UNK UNK,UNK
     Route: 048
  11. SULFAMETHOXAZOLE/TRIMETHOPRIM [Suspect]
     Active Substance: SULFAMETHOXAZOLE\TRIMETHOPRIM
     Dosage: 160 MG,Q12H
     Route: 048
     Dates: start: 20170516, end: 20170520
  12. MOVICOL [Concomitant]
     Active Substance: POLYETHYLENE GLYCOL 3350\POTASSIUM CHLORIDE\SODIUM BICARBONATE\SODIUM CHLORIDE
     Dosage: 1 SACHET PER DAY
     Route: 065
     Dates: start: 20170810
  13. LAXOBERON [Concomitant]
     Active Substance: SODIUM PICOSULFATE
     Dosage: 15 MG, QD
     Route: 065
     Dates: start: 20170802
  14. MORPHINE HYDROCHLORIDE [Concomitant]
     Active Substance: MORPHINE HYDROCHLORIDE
     Dosage: 7.5 MG, TID
  15. QUETIAPINE FUMARATE. [Suspect]
     Active Substance: QUETIAPINE FUMARATE
     Indication: BIPOLAR DISORDER
     Dosage: 25 MG,QID (BEGINNING OF WEANING ON 17/08/2017)
     Route: 048
     Dates: start: 201707, end: 20170911
  16. RIVOTRIL [Concomitant]
     Active Substance: CLONAZEPAM
     Dosage: 0.5 MG IN THE MORNING AND 1 MG IN THE EVENING
     Route: 065
     Dates: start: 20170718
  17. CLYSSIE [Concomitant]
     Dosage: A DOSE OF 120 ML ON 04/08/2017, ANOTHER DOSE OF 120 ML ON 09/08/2017 MORNING, SEIZURE OCCURRED ON 09
     Route: 054
     Dates: start: 20170804, end: 20170820
  18. CALCIMAGON-D3 [Concomitant]
     Active Substance: CALCIUM\CHOLECALCIFEROL
     Dosage: UNK UNK,UNK
     Route: 065
     Dates: start: 20170519
  19. CLYSSIE [Concomitant]
     Indication: CONSTIPATION
     Dosage: UNK ML
     Route: 054
     Dates: start: 20170518

REACTIONS (2)
  - Thrombocytopenia [Recovered/Resolved]
  - Epilepsy [Recovered/Resolved]

NARRATIVE: CASE EVENT DATE: 201705
